FAERS Safety Report 14125764 (Version 1)
Quarter: 2017Q4

REPORT INFORMATION
  Report Type: Spontaneous
  Country: CN (occurrence: CN)
  Receive Date: 20171025
  Receipt Date: 20171025
  Transmission Date: 20180321
  Serious: Yes (Other)
  Sender: FDA-Public Use
  Company Number: CN-GLAXOSMITHKLINE-CN2017GSK163152

PATIENT
  Age: 39 Year
  Sex: Male
  Weight: 59 kg

DRUGS (1)
  1. VOTALIN (DICLOFENAC DIETHYLAMMONIUM SALT) [Suspect]
     Active Substance: DICLOFENAC DIETHYLAMINE
     Indication: LIGAMENT SPRAIN
     Dosage: 1 UG, TID
     Route: 061
     Dates: start: 20170801, end: 20170801

REACTIONS (1)
  - Anaphylactic reaction [Recovered/Resolved]

NARRATIVE: CASE EVENT DATE: 20170801
